FAERS Safety Report 5803433-1 (Version None)
Quarter: 2008Q3

REPORT INFORMATION
  Report Type: 
  Country: None (occurrence: None)
  Receive Date: 20080708
  Receipt Date: 20080703
  Transmission Date: 20090109
  Serious: Yes (Hospitalization)
  Sender: FDA-Public Use
  Company Number: IT-BAYER-200821657GPV

PATIENT
  Age: 94 Year
  Sex: Female

DRUGS (9)
  1. ASPIRIN [Suspect]
     Indication: PROPHYLAXIS
     Dosage: TOTAL DAILY DOSE: 100 MG  UNIT DOSE: 100 MG
     Route: 048
     Dates: start: 20080116, end: 20080608
  2. FOLIC ACID [Concomitant]
     Indication: DRUG USE FOR UNKNOWN INDICATION
  3. NITROCOR (GLYCERYL TRINITRATE) [Concomitant]
     Indication: MYOCARDIAL ISCHAEMIA
     Dosage: TOTAL DAILY DOSE: 10 MG  UNIT DOSE: 10 MG
     Route: 062
     Dates: start: 20080216, end: 20080608
  4. PERINDOPRIL ERBUMINE [Concomitant]
     Indication: HYPERTENSION
     Dosage: TOTAL DAILY DOSE: 5 MG  UNIT DOSE: 5 MG
     Route: 048
     Dates: start: 20080116, end: 20080608
  5. ALDACTONE [Concomitant]
     Indication: HYPERTENSION
     Dosage: TOTAL DAILY DOSE: 25 MG  UNIT DOSE: 25 MG
     Route: 048
     Dates: start: 20080216, end: 20080608
  6. LASIX [Concomitant]
     Indication: HYPERTENSION
     Route: 048
     Dates: start: 20080116, end: 20080608
  7. LENTO-KALIUM (POTASSIUM CHLORIDE) [Concomitant]
     Indication: PROPHYLAXIS
     Dosage: TOTAL DAILY DOSE: 600 MG  UNIT DOSE: 600 MG
     Route: 048
     Dates: start: 20080116, end: 20080608
  8. PANTORC (PANTOPRAZOLE) [Concomitant]
     Indication: PROPHYLAXIS
     Route: 048
     Dates: start: 20080116, end: 20080608
  9. FERRO GRAD C (FERROUS SULPHATE + ASCORBIC ACID) [Concomitant]
     Indication: DRUG USE FOR UNKNOWN INDICATION
     Route: 065

REACTIONS (3)
  - ANAEMIA [None]
  - GASTROINTESTINAL HAEMORRHAGE [None]
  - SUBENDOCARDIAL ISCHAEMIA [None]
